FAERS Safety Report 4723559-3 (Version None)
Quarter: 2005Q3

REPORT INFORMATION
  Report Type: 
  Country: None (occurrence: None)
  Receive Date: 20050720
  Receipt Date: 20050720
  Transmission Date: 20060218
  Serious: No
  Sender: FDA-Public Use
  Company Number: None

PATIENT
  Age: 36 Year
  Sex: Female

DRUGS (1)
  1. IRON DEXTRAN [Suspect]
     Indication: COLITIS ULCERATIVE
     Dates: start: 20041214

REACTIONS (3)
  - DYSPNOEA [None]
  - HOT FLUSH [None]
  - NAUSEA [None]
